FAERS Safety Report 4699139-5 (Version None)
Quarter: 2005Q2

REPORT INFORMATION
  Report Type: 
  Country: None (occurrence: None)
  Receive Date: 20050623
  Receipt Date: 20050623
  Transmission Date: 20051028
  Serious: Yes (Other)
  Sender: FDA-Public Use
  Company Number: None

PATIENT
  Sex: Male
  Weight: 103.4201 kg

DRUGS (2)
  1. NICOTINE [Suspect]
     Indication: TOBACCO ABUSE
     Dosage: 21 MG DAILY TRANSDERMAL
     Route: 062
     Dates: start: 20050616, end: 20050622
  2. WELLBUTRIN XL [Concomitant]

REACTIONS (3)
  - NAUSEA [None]
  - PHARMACEUTICAL PRODUCT COMPLAINT [None]
  - TREMOR [None]
